FAERS Safety Report 8786066 (Version 1)
Quarter: 2012Q4

REPORT INFORMATION
  Report Type: Report from Study
  Country: JP (occurrence: JP)
  Receive Date: 20120914
  Receipt Date: 20120914
  Transmission Date: 20130627
  Serious: Yes (Other)
  Sender: FDA-Public Use
  Company Number: JP-VERTEX PHARMACEUTICAL INC.-AE-2012-006226

PATIENT
  Age: 37 Year
  Sex: Male

DRUGS (8)
  1. VX-950 [Suspect]
     Indication: HEPATITIS C
     Dosage: 2250 mg, qd
     Route: 048
     Dates: start: 20120217, end: 20120420
  2. VX-950 [Suspect]
     Dosage: 750 UNK, UNK
     Route: 048
     Dates: start: 20120421, end: 20120425
  3. VX-950 [Suspect]
     Dosage: 750 UNK, UNK
     Route: 048
     Dates: start: 20120507, end: 20120518
  4. PEGINTERFERON ALFA-2B [Concomitant]
     Dosage: 1.5 ?g/kg, UNK
     Route: 058
     Dates: start: 20120217
  5. REBETOL [Suspect]
     Indication: HEPATITIS C
     Dosage: 600 mg, qd
     Route: 048
     Dates: start: 20120217, end: 20120315
  6. REBETOL [Suspect]
     Dosage: 200 mg, qd
     Route: 048
     Dates: start: 20120316, end: 20120425
  7. REBETOL [Suspect]
     Dosage: 200 mg, qd
     Route: 048
     Dates: start: 20120428
  8. GASTER [Concomitant]
     Dosage: 20 mg, qd
     Route: 048
     Dates: start: 20120425, end: 20120506

REACTIONS (1)
  - Rash [Recovered/Resolved]
